FAERS Safety Report 5968644-3 (Version None)
Quarter: 2008Q4

REPORT INFORMATION
  Report Type: 
  Country: None (occurrence: None)
  Receive Date: 20081126
  Receipt Date: 20081119
  Transmission Date: 20090506
  Serious: Yes (Hospitalization, Other)
  Sender: FDA-Public Use
  Company Number: US-ELI_LILLY_AND_COMPANY-US200811004646

PATIENT
  Sex: Female

DRUGS (11)
  1. FORTEO [Suspect]
     Indication: OSTEOPOROSIS
     Dosage: 20 UG, DAILY (1/D)
  2. CALCITRIOL [Concomitant]
     Dosage: UNK, 3/W
  3. OSCAL [Concomitant]
     Dosage: 500 UNK, 3/D
  4. COLACE [Concomitant]
     Dosage: UNK, 2/D
  5. SENOKOT [Concomitant]
     Dosage: UNK, 2/D
  6. ARICEPT [Concomitant]
     Dosage: UNK, DAILY (1/D)
  7. LOVENOX [Concomitant]
     Dosage: UNK, DAILY (1/D)
  8. VITAMIN D [Concomitant]
     Dosage: UNK, WEEKLY (1/W)
  9. SYNTHROID [Concomitant]
     Dosage: UNK, DAILY (1/D)
  10. LOPRESSOR [Concomitant]
     Dosage: UNK, 2/D
  11. PROTONIX [Concomitant]

REACTIONS (2)
  - FALL [None]
  - HIP FRACTURE [None]
